FAERS Safety Report 17932533 (Version 1)
Quarter: 2020Q2

REPORT INFORMATION
  Report Type: Spontaneous
  Country: IT (occurrence: IT)
  Receive Date: 20200624
  Receipt Date: 20200624
  Transmission Date: 20200714
  Serious: Yes (Other)
  Sender: FDA-Public Use
  Company Number: IT-SUN PHARMACEUTICAL INDUSTRIES LTD-2020R1-250809

PATIENT
  Age: 52 Year
  Sex: Male

DRUGS (7)
  1. PEMBROLIZUMAB. [Suspect]
     Active Substance: PEMBROLIZUMAB
     Indication: LUNG ADENOCARCINOMA
     Dosage: 2 MILLIGRAM/KILOGRAM (EVERY 3 WEEKS)
     Route: 065
     Dates: start: 201709
  2. CITALOPRAM [Suspect]
     Active Substance: CITALOPRAM HYDROBROMIDE
     Indication: DEPRESSION
  3. TOPIRAMATE. [Suspect]
     Active Substance: TOPIRAMATE
     Indication: DEPRESSION
  4. GABAPENTIN. [Suspect]
     Active Substance: GABAPENTIN
     Indication: EPILEPSY
  5. TOPIRAMATE. [Suspect]
     Active Substance: TOPIRAMATE
     Indication: EPILEPSY
     Dosage: UNK
     Route: 065
  6. GABAPENTIN. [Suspect]
     Active Substance: GABAPENTIN
     Indication: DEPRESSION
     Dosage: UNK
     Route: 065
  7. CITALOPRAM [Suspect]
     Active Substance: CITALOPRAM HYDROBROMIDE
     Indication: EPILEPSY
     Dosage: UNK
     Route: 065

REACTIONS (2)
  - Hypocalcaemia [Not Recovered/Not Resolved]
  - Hyponatraemia [Recovering/Resolving]
